FAERS Safety Report 7863171-0 (Version None)
Quarter: 2011Q4

REPORT INFORMATION
  Report Type: 
  Country: None (occurrence: None)
  Receive Date: 20111027
  Receipt Date: 20101129
  Transmission Date: 20120403
  Serious: No
  Sender: FDA-Public Use
  Company Number: US-AMGEN-USASP2010006850

PATIENT
  Age: 49 Year
  Sex: Female

DRUGS (6)
  1. VITAMIN D [Concomitant]
     Dosage: 400 IU, UNK
     Route: 048
  2. FISH OIL [Concomitant]
  3. MULTIVITAMIN                       /00097801/ [Concomitant]
  4. NEXIUM [Concomitant]
     Dosage: 40 MG, UNK
     Route: 048
  5. ENBREL [Suspect]
     Indication: PRODUCT USED FOR UNKNOWN INDICATION
     Dosage: 25 MG, 2 TIMES/WK
  6. CALCIUM CARBONATE [Concomitant]

REACTIONS (3)
  - INJECTION SITE HAEMATOMA [None]
  - DYSPEPSIA [None]
  - INJECTION SITE ERYTHEMA [None]
